FAERS Safety Report 7302295-3 (Version None)
Quarter: 2011Q1

REPORT INFORMATION
  Report Type: 
  Country: None (occurrence: None)
  Receive Date: 20110218
  Receipt Date: 20110210
  Transmission Date: 20110831
  Serious: Yes (Hospitalization)
  Sender: FDA-Public Use
  Company Number: GB-BRISTOL-MYERS SQUIBB COMPANY-15133374

PATIENT
  Age: 55 Year
  Sex: Male

DRUGS (6)
  1. LOPINAVIR [Suspect]
     Indication: HIV INFECTION
     Route: 065
  2. RITONAVIR [Suspect]
     Indication: ANTIRETROVIRAL THERAPY
     Route: 065
  3. ZIDOVUDINE [Suspect]
     Indication: HIV INFECTION
     Route: 065
  4. EFAVIRENZ [Suspect]
     Indication: HIV INFECTION
  5. LAMIVUDINE [Suspect]
     Indication: HIV INFECTION
     Route: 065
  6. ABACAVIR [Suspect]
     Indication: HIV INFECTION
     Route: 065

REACTIONS (18)
  - BLOOD HIV RNA INCREASED [None]
  - TARDIVE DYSKINESIA [None]
  - CONFUSIONAL STATE [None]
  - MULTIPLE-DRUG RESISTANCE [None]
  - DISORIENTATION [None]
  - COGNITIVE DISORDER [None]
  - MOBILITY DECREASED [None]
  - DISTURBANCE IN ATTENTION [None]
  - CSF PROTEIN INCREASED [None]
  - FAECAL INCONTINENCE [None]
  - DYSARTHRIA [None]
  - DYSKINESIA [None]
  - AFFECT LABILITY [None]
  - APHASIA [None]
  - URINARY INCONTINENCE [None]
  - AIDS ENCEPHALOPATHY [None]
  - AMNESIA [None]
  - PYREXIA [None]
